FAERS Safety Report 20624672 (Version 1)
Quarter: 2022Q1

REPORT INFORMATION
  Report Type: Spontaneous
  Country: CH (occurrence: CH)
  Receive Date: 20220323
  Receipt Date: 20220323
  Transmission Date: 20220424
  Serious: Yes (Hospitalization)
  Sender: FDA-Public Use
  Company Number: CH-STRIDES ARCOLAB LIMITED-2022SP002879

PATIENT
  Age: 84 Year
  Sex: Female

DRUGS (5)
  1. CINACALCET [Suspect]
     Active Substance: CINACALCET
     Indication: Hypercalcaemia
     Dosage: WITH INCREASING DOSES UP TO 90MG TWICE DAILY
     Route: 065
     Dates: start: 2019
  2. CINACALCET [Suspect]
     Active Substance: CINACALCET
     Dosage: 30 MILLIGRAM, TID
     Route: 065
     Dates: start: 2019
  3. CALCITONIN [Suspect]
     Active Substance: CALCITONIN
     Indication: Hypercalcaemia
     Dosage: UNK
     Route: 065
     Dates: start: 2019
  4. SODIUM CHLORIDE [Concomitant]
     Active Substance: SODIUM CHLORIDE
     Indication: Hypercalcaemia
     Dosage: UNK, INTRAVENOUS INFUSION
     Route: 050
     Dates: start: 2019
  5. ZOLEDRONIC ACID [Concomitant]
     Active Substance: ZOLEDRONIC ACID
     Indication: Hypercalcaemia
     Dosage: 5 MILLIGRAM
     Route: 042
     Dates: start: 2019

REACTIONS (6)
  - Acute kidney injury [Unknown]
  - Drug intolerance [Unknown]
  - Dehydration [Unknown]
  - Nausea [Unknown]
  - Vomiting [Unknown]
  - Drug ineffective [Unknown]

NARRATIVE: CASE EVENT DATE: 20190101
